FAERS Safety Report 4292106-5 (Version None)
Quarter: 2004Q1

REPORT INFORMATION
  Report Type: 
  Country: None (occurrence: None)
  Receive Date: 20040210
  Receipt Date: 20040210
  Transmission Date: 20041129
  Serious: No
  Sender: FDA-Public Use
  Company Number: None

PATIENT
  Age: 51 Year
  Sex: Female
  Weight: 117.9352 kg

DRUGS (2)
  1. VICODIN [Suspect]
     Indication: ARTHRALGIA
     Dosage: 1 Q 3-4 HRS PO (X1)
     Route: 048
     Dates: start: 20031217
  2. VICODIN [Suspect]
     Indication: MIGRAINE
     Dosage: 1 Q 3-4 HRS PO (X1)
     Route: 048
     Dates: start: 20031217

REACTIONS (6)
  - ABDOMINAL DISCOMFORT [None]
  - DISORIENTATION [None]
  - HEPATOTOXICITY [None]
  - NAUSEA [None]
  - PARAESTHESIA [None]
  - PHARMACEUTICAL PRODUCT COMPLAINT [None]
